FAERS Safety Report 9081404 (Version 1)
Quarter: 2013Q1

REPORT INFORMATION
  Report Type: Report from Study
  Country: US (occurrence: US)
  Receive Date: 20130130
  Receipt Date: 20130130
  Transmission Date: 20140127
  Serious: No
  Sender: FDA-Public Use
  Company Number: US-ABBOTT-12P-163-0953670-00

PATIENT
  Age: 54 Year
  Sex: Male

DRUGS (1)
  1. HUMIRA 40 MG/0.8 ML PEN [Suspect]
     Indication: PSORIASIS
     Dosage: LOADING DOSE ONLY
     Dates: start: 20120611, end: 20120611

REACTIONS (6)
  - Weight increased [Unknown]
  - Psoriasis [Unknown]
  - Urticaria [Unknown]
  - Urticaria [Unknown]
  - Skin exfoliation [Unknown]
  - Dry skin [Unknown]
